FAERS Safety Report 17870428 (Version 1)
Quarter: 2020Q2

REPORT INFORMATION
  Report Type: Report from Study
  Country: CN (occurrence: CN)
  Receive Date: 20200608
  Receipt Date: 20200608
  Transmission Date: 20200714
  Serious: Yes (Other)
  Sender: FDA-Public Use
  Company Number: CN-ROCHE-2610548

PATIENT

DRUGS (2)
  1. PREDNISONE. [Suspect]
     Active Substance: PREDNISONE
     Indication: IMMUNE THROMBOCYTOPENIA
     Route: 065
  2. RITUXIMAB. [Suspect]
     Active Substance: RITUXIMAB
     Indication: IMMUNE THROMBOCYTOPENIA
     Route: 065

REACTIONS (10)
  - Body tinea [Unknown]
  - Upper respiratory tract infection [Unknown]
  - Meningitis cryptococcal [Unknown]
  - Subarachnoid haemorrhage [Unknown]
  - Hypersensitivity [Recovered/Resolved]
  - Anal abscess [Unknown]
  - Escherichia sepsis [Unknown]
  - Varicella zoster virus infection [Unknown]
  - Urinary tract infection [Unknown]
  - Pneumonia [Unknown]
